FAERS Safety Report 23445847 (Version 2)
Quarter: 2024Q1

REPORT INFORMATION
  Report Type: Report from Study
  Country: CA (occurrence: CA)
  Receive Date: 20240126
  Receipt Date: 20240202
  Transmission Date: 20240409
  Serious: No
  Sender: FDA-Public Use
  Company Number: CA-CHIESI-2022CHF06559

PATIENT
  Age: 18 Year
  Sex: Female
  Weight: 55.3 kg

DRUGS (2)
  1. DEFERIPRONE [Suspect]
     Active Substance: DEFERIPRONE
     Indication: Thalassaemia
     Dosage: UNK
     Route: 048
     Dates: start: 20150814, end: 202302
  2. DEFERIPRONE [Suspect]
     Active Substance: DEFERIPRONE
     Dosage: UNK
     Route: 048
     Dates: start: 20240118

REACTIONS (5)
  - Illness [Recovered/Resolved]
  - Irritable bowel syndrome [Recovered/Resolved]
  - Nasopharyngitis [Recovered/Resolved]
  - Product dose omission issue [Recovered/Resolved]
  - Off label use [Not Recovered/Not Resolved]

NARRATIVE: CASE EVENT DATE: 20150814
